FAERS Safety Report 25983168 (Version 1)
Quarter: 2025Q4

REPORT INFORMATION
  Report Type: Spontaneous
  Country: US (occurrence: US)
  Receive Date: 20251031
  Receipt Date: 20251031
  Transmission Date: 20260118
  Serious: No
  Sender: MACLEODS
  Company Number: US-MACLEODS PHARMA-MAC2025055954

PATIENT

DRUGS (1)
  1. SILODOSIN [Suspect]
     Active Substance: SILODOSIN
     Indication: Product used for unknown indication
     Dosage: ONCE DAILY WITH FOOD. NDC NO:33342-385-07, 30^S CONTAINER PACK
     Route: 065

REACTIONS (2)
  - Blood pressure decreased [Unknown]
  - Asthenia [Unknown]
